FAERS Safety Report 15940623 (Version 1)
Quarter: 2019Q1

REPORT INFORMATION
  Report Type: Spontaneous
  Country: US (occurrence: US)
  Receive Date: 20190208
  Receipt Date: 20190208
  Transmission Date: 20190417
  Serious: No
  Sender: FDA-Public Use
  Company Number: US-PFM-2018-01000

PATIENT

DRUGS (21)
  1. TRASTUZUMAB. [Concomitant]
     Active Substance: TRASTUZUMAB
     Dosage: UNK
     Route: 065
     Dates: start: 200710, end: 200903
  2. VINORELBINE [Suspect]
     Active Substance: VINORELBINE\VINORELBINE TARTRATE
     Dosage: CYCLE 1
     Route: 065
     Dates: start: 20090410
  3. VINORELBINE [Suspect]
     Active Substance: VINORELBINE\VINORELBINE TARTRATE
     Dosage: CYCLE 3
     Route: 065
     Dates: start: 20090605
  4. VINORELBINE [Suspect]
     Active Substance: VINORELBINE\VINORELBINE TARTRATE
     Dosage: CYCLE 6
     Route: 065
     Dates: start: 20090911
  5. TRASTUZUMAB. [Concomitant]
     Active Substance: TRASTUZUMAB
     Dosage: CYCLE 4
     Route: 065
     Dates: start: 20090706
  6. PERIFOSINE [Concomitant]
     Active Substance: PERIFOSINE
     Indication: BREAST CANCER METASTATIC
     Dosage: UNK
     Route: 065
     Dates: start: 200608, end: 200710
  7. TRASTUZUMAB. [Concomitant]
     Active Substance: TRASTUZUMAB
     Dosage: CYCLE 1
     Route: 065
     Dates: start: 20090410
  8. TRASTUZUMAB. [Concomitant]
     Active Substance: TRASTUZUMAB
     Dosage: CYCLE 1
     Route: 065
     Dates: start: 20091119
  9. LETROZOLE. [Concomitant]
     Active Substance: LETROZOLE
     Indication: BREAST CANCER METASTATIC
     Dosage: UNK
     Route: 065
     Dates: start: 2004, end: 2006
  10. VINORELBINE [Suspect]
     Active Substance: VINORELBINE\VINORELBINE TARTRATE
     Dosage: CYCLE 2
     Route: 065
     Dates: start: 20090508
  11. TRASTUZUMAB. [Concomitant]
     Active Substance: TRASTUZUMAB
     Dosage: CYCLE 2
     Route: 065
     Dates: start: 20090508
  12. VINORELBINE [Suspect]
     Active Substance: VINORELBINE\VINORELBINE TARTRATE
     Dosage: CYCLE 5
     Route: 065
     Dates: start: 20090810
  13. TRASTUZUMAB. [Concomitant]
     Active Substance: TRASTUZUMAB
     Dosage: CYCLE 6
     Route: 065
     Dates: start: 20090911
  14. VINORELBINE [Suspect]
     Active Substance: VINORELBINE\VINORELBINE TARTRATE
     Dosage: CYCLE 4
     Route: 065
     Dates: start: 20090706
  15. TRASTUZUMAB. [Concomitant]
     Active Substance: TRASTUZUMAB
     Dosage: CYCLE 3
     Route: 065
     Dates: start: 20090605
  16. TRASTUZUMAB. [Concomitant]
     Active Substance: TRASTUZUMAB
     Dosage: CYCLE 5
     Route: 065
     Dates: start: 20090810
  17. TRASTUZUMAB. [Concomitant]
     Active Substance: TRASTUZUMAB
     Dosage: CYCLE 7
     Route: 065
     Dates: start: 20091009
  18. VINORELBINE [Suspect]
     Active Substance: VINORELBINE\VINORELBINE TARTRATE
     Indication: BREAST CANCER METASTATIC
     Dosage: X 8 CYCLES
     Route: 065
     Dates: start: 200306, end: 200401
  19. VINORELBINE [Suspect]
     Active Substance: VINORELBINE\VINORELBINE TARTRATE
     Dosage: CYCLE 7
     Route: 065
     Dates: start: 20091009
  20. TRASTUZUMAB. [Concomitant]
     Active Substance: TRASTUZUMAB
     Indication: BREAST CANCER METASTATIC
     Dosage: UNK
     Route: 065
     Dates: start: 200401, end: 2006
  21. FULVESTRANT. [Concomitant]
     Active Substance: FULVESTRANT
     Indication: BREAST CANCER METASTATIC
     Dosage: UNK
     Route: 065
     Dates: start: 200710, end: 200903

REACTIONS (2)
  - Product use in unapproved indication [Unknown]
  - Off label use [Unknown]
